FAERS Safety Report 6502684-0 (Version None)
Quarter: 2009Q4

REPORT INFORMATION
  Report Type: 
  Country: None (occurrence: None)
  Receive Date: 20091217
  Receipt Date: 20091207
  Transmission Date: 20100525
  Serious: Yes (Hospitalization, Other)
  Sender: FDA-Public Use
  Company Number: JP-JNJFOC-20080805594

PATIENT
  Sex: Male
  Weight: 15 kg

DRUGS (10)
  1. ITRIZOLE [Suspect]
     Indication: PULMONARY MYCOSIS
     Route: 048
     Dates: start: 20071205
  2. ITRIZOLE [Suspect]
     Route: 048
     Dates: start: 20071205
  3. ITRIZOLE [Suspect]
     Indication: FUNGAL INFECTION
     Route: 048
     Dates: start: 20071205
  4. ITRIZOLE [Suspect]
     Route: 048
     Dates: start: 20071205
  5. AMBISOME [Interacting]
     Indication: PULMONARY MYCOSIS
     Route: 041
     Dates: start: 20080416, end: 20080501
  6. AMBISOME [Interacting]
     Indication: FUNGAL INFECTION
     Route: 041
     Dates: start: 20080416, end: 20080501
  7. AMPHOTERICIN B [Suspect]
     Indication: PULMONARY MYCOSIS
     Route: 041
  8. CEFTRIAXONE SODIUM [Concomitant]
     Indication: PNEUMONIA
     Route: 042
     Dates: start: 20071128, end: 20071206
  9. AZITHROMYCIN HYDRATE [Concomitant]
     Indication: PNEUMONIA
     Route: 048
  10. BAKTAR [Concomitant]
     Indication: CHRONIC GRANULOMATOUS DISEASE
     Route: 048

REACTIONS (5)
  - DRUG INTERACTION [None]
  - HYPOKALAEMIA [None]
  - PAIN IN EXTREMITY [None]
  - RHABDOMYOLYSIS [None]
  - TREATMENT NONCOMPLIANCE [None]
